FAERS Safety Report 10543709 (Version 2)
Quarter: 2014Q4

REPORT INFORMATION
  Report Type: Spontaneous
  Country: ES (occurrence: ES)
  Receive Date: 20141027
  Receipt Date: 20141114
  Transmission Date: 20150529
  Serious: Yes (Hospitalization)
  Sender: FDA-Public Use
  Company Number: ES-TEVA-516298ISR

PATIENT
  Age: 11 Year
  Sex: Female

DRUGS (1)
  1. TOPIRAMATE. [Suspect]
     Active Substance: TOPIRAMATE
     Indication: MIGRAINE

REACTIONS (11)
  - Depressed level of consciousness [Recovered/Resolved]
  - Body temperature increased [Recovered/Resolved]
  - Bradyphrenia [Recovered/Resolved]
  - Renal failure [Recovered/Resolved]
  - Transaminases increased [Recovered/Resolved]
  - Heat stroke [Recovered/Resolved]
  - Posture abnormal [Recovered/Resolved]
  - Speech disorder [Recovered/Resolved]
  - Asthenia [Recovered/Resolved]
  - Low cardiac output syndrome [Recovered/Resolved]
  - Coordination abnormal [Recovered/Resolved]
